FAERS Safety Report 23835013 (Version 2)
Quarter: 2025Q3

REPORT INFORMATION
  Report Type: Spontaneous
  Country: EU (occurrence: EU)
  Receive Date: 20240509
  Receipt Date: 20250814
  Transmission Date: 20251020
  Serious: Yes (Death, Hospitalization)
  Sender: ROCHE
  Company Number: EU-ROCHE-3556120

PATIENT
  Age: 2 Year
  Sex: Female

DRUGS (3)
  1. OCREVUS [Suspect]
     Active Substance: OCRELIZUMAB
     Indication: Product used for unknown indication
     Dosage: LAST DOSE: -APR-2025
     Route: 063
     Dates: start: 202011
  2. OCREVUS [Suspect]
     Active Substance: OCRELIZUMAB
     Route: 063
     Dates: start: 202201
  3. OCREVUS [Suspect]
     Active Substance: OCRELIZUMAB
     Route: 063
     Dates: start: 202106

REACTIONS (2)
  - Brain neoplasm malignant [Fatal]
  - Exposure via breast milk [Unknown]

NARRATIVE: CASE EVENT DATE: 20241201
